FAERS Safety Report 20378378 (Version 1)
Quarter: 2022Q1

REPORT INFORMATION
  Report Type: Spontaneous
  Country: None (occurrence: KR)
  Receive Date: 20220126
  Receipt Date: 20220126
  Transmission Date: 20220423
  Serious: Yes (Life-Threatening, Other)
  Sender: FDA-Public Use
  Company Number: KR-Acacia Pharma Limited-2124291

PATIENT
  Age: 23 Year
  Sex: Female

DRUGS (5)
  1. BYFAVO [Suspect]
     Active Substance: REMIMAZOLAM BESYLATE
     Indication: Induction of anaesthesia
     Route: 042
     Dates: start: 20220110, end: 20220110
  2. MIDAZOLAM [Concomitant]
     Active Substance: MIDAZOLAM
     Route: 065
     Dates: start: 20220110
  3. PHENIRAMINE [Concomitant]
     Active Substance: PHENIRAMINE
     Route: 065
     Dates: start: 20220110
  4. PHENYLEPHRINE [Concomitant]
     Active Substance: PHENYLEPHRINE HYDROCHLORIDE
     Route: 065
     Dates: start: 20220110
  5. EPINEPHRINE [Concomitant]
     Active Substance: EPINEPHRINE
     Route: 065
     Dates: start: 20220110

REACTIONS (3)
  - Anaphylactic reaction [Recovered/Resolved]
  - Electrocardiogram ST segment depression [Unknown]
  - Administration site oedema [Recovered/Resolved]

NARRATIVE: CASE EVENT DATE: 20220110
